FAERS Safety Report 19218447 (Version 1)
Quarter: 2021Q2

REPORT INFORMATION
  Report Type: Spontaneous
  Country: US (occurrence: US)
  Receive Date: 20210505
  Receipt Date: 20210505
  Transmission Date: 20210717
  Serious: No
  Sender: FDA-Public Use
  Company Number: US-009507513-2105USA000837

PATIENT
  Age: 49 Year
  Sex: Male

DRUGS (2)
  1. NOXAFIL [Suspect]
     Active Substance: POSACONAZOLE
     Indication: FUNGAL INFECTION
     Dosage: 300 MILLIGRAM, QD
  2. NOXAFIL [Suspect]
     Active Substance: POSACONAZOLE
     Indication: BURSITIS

REACTIONS (1)
  - Off label use [Unknown]
